FAERS Safety Report 6326807-1 (Version None)
Quarter: 2009Q3

REPORT INFORMATION
  Report Type: 
  Country: None (occurrence: None)
  Receive Date: 20090825
  Receipt Date: 20090817
  Transmission Date: 20100115
  Serious: Yes (Hospitalization)
  Sender: FDA-Public Use
  Company Number: US-ROCHE-650842

PATIENT
  Age: 58 Year
  Sex: Female

DRUGS (2)
  1. BONIVA [Suspect]
     Indication: OSTEOPENIA
     Route: 048
     Dates: start: 20090808, end: 20090817
  2. THYROID TAB [Concomitant]

REACTIONS (3)
  - CHEST PAIN [None]
  - PAIN IN JAW [None]
  - PYREXIA [None]
